FAERS Safety Report 9312966 (Version 1)
Quarter: 2013Q2

REPORT INFORMATION
  Report Type: Spontaneous
  Country: US (occurrence: US)
  Receive Date: 20130528
  Receipt Date: 20130528
  Transmission Date: 20140414
  Serious: No
  Sender: FDA-Public Use
  Company Number: US-ABBOTT-13P-163-1081137-00

PATIENT
  Age: 87 Year
  Sex: Male

DRUGS (8)
  1. ANDROGEL [Suspect]
     Indication: BLOOD TESTOSTERONE DECREASED
     Dates: start: 20130410
  2. EXLON [Concomitant]
     Indication: PARKINSON^S DISEASE
  3. SINMET [Concomitant]
     Indication: PARKINSON^S DISEASE
  4. CLOZEPAM [Concomitant]
     Indication: SLEEP DISORDER
  5. SEROQUEL [Concomitant]
     Indication: PARKINSON^S DISEASE
  6. ALBUTEROL [Concomitant]
     Indication: ASTHMA
  7. SPIRIVA [Concomitant]
     Indication: ASTHMA
  8. FEROSEMIDE [Concomitant]
     Indication: DIURETIC THERAPY

REACTIONS (1)
  - Macule [Not Recovered/Not Resolved]
